FAERS Safety Report 12643624 (Version 1)
Quarter: 2016Q3

REPORT INFORMATION
  Report Type: Spontaneous
  Country: US (occurrence: US)
  Receive Date: 20160811
  Receipt Date: 20160811
  Transmission Date: 20161109
  Serious: No
  Sender: FDA-Public Use
  Company Number: US-BEH-2016072327

PATIENT
  Age: 61 Year
  Sex: Female
  Weight: 98.87 kg

DRUGS (30)
  1. DILTIAZEM. [Concomitant]
     Active Substance: DILTIAZEM
  2. PANTOPRAZOLE [Concomitant]
     Active Substance: PANTOPRAZOLE SODIUM
  3. METFORMIN [Concomitant]
     Active Substance: METFORMIN HYDROCHLORIDE
  4. LANSOPRAZOLE. [Concomitant]
     Active Substance: LANSOPRAZOLE
  5. LISINOPRIL. [Concomitant]
     Active Substance: LISINOPRIL
  6. NORMAL SALINE [Concomitant]
     Active Substance: SODIUM CHLORIDE
  7. OMEGA 3                            /01333901/ [Concomitant]
     Active Substance: FISH OIL\TOCOPHEROL
  8. SINGULAIR [Concomitant]
     Active Substance: MONTELUKAST SODIUM
  9. ZEMAIRA [Suspect]
     Active Substance: .ALPHA.1-PROTEINASE INHIBITOR HUMAN
     Indication: ALPHA-1 ANTI-TRYPSIN DEFICIENCY
     Dosage: 60 MG/KG, QW
     Route: 042
     Dates: start: 20100125
  10. EPIPEN [Concomitant]
     Active Substance: EPINEPHRINE
  11. BIOTIN [Concomitant]
     Active Substance: BIOTIN
  12. LIPITOR [Concomitant]
     Active Substance: ATORVASTATIN CALCIUM
  13. SPIRIVA [Concomitant]
     Active Substance: TIOTROPIUM BROMIDE MONOHYDRATE
  14. CALCIUM + D DUETTO [Concomitant]
  15. AMOXICILLIN. [Concomitant]
     Active Substance: AMOXICILLIN
  16. SODIUM CHLORIDE. [Concomitant]
     Active Substance: SODIUM CHLORIDE
  17. KLONOPIN [Concomitant]
     Active Substance: CLONAZEPAM
  18. HYDROCODONE BITARTRATE AND ACETAMINOPHEN [Concomitant]
     Active Substance: ACETAMINOPHEN\HYDROCODONE BITARTRATE
  19. LORATADINE. [Concomitant]
     Active Substance: LORATADINE
  20. FLAXSEED [Concomitant]
     Active Substance: FLAX SEED
  21. IBUPROFEN. [Concomitant]
     Active Substance: IBUPROFEN
  22. SUCRALFATE. [Concomitant]
     Active Substance: SUCRALFATE
  23. PREDNISONE. [Concomitant]
     Active Substance: PREDNISONE
  24. DUONEB [Concomitant]
     Active Substance: ALBUTEROL SULFATE\IPRATROPIUM BROMIDE
  25. PROAIR HFA [Concomitant]
     Active Substance: ALBUTEROL SULFATE
  26. SPIRONOLACTONE. [Concomitant]
     Active Substance: SPIRONOLACTONE
  27. DIPHENHYDRAMINE. [Concomitant]
     Active Substance: DIPHENHYDRAMINE
  28. PLAVIX [Concomitant]
     Active Substance: CLOPIDOGREL BISULFATE
  29. ALBUTEROL                          /00139501/ [Concomitant]
     Active Substance: ALBUTEROL
  30. VITAMIN C [Concomitant]
     Active Substance: ASCORBIC ACID

REACTIONS (1)
  - Dysphonia [Unknown]

NARRATIVE: CASE EVENT DATE: 201604
